FAERS Safety Report 13594803 (Version 5)
Quarter: 2017Q3

REPORT INFORMATION
  Report Type: Report from Study
  Country: BR (occurrence: BR)
  Receive Date: 20170530
  Receipt Date: 20170713
  Transmission Date: 20171127
  Serious: Yes (Death, Hospitalization)
  Sender: FDA-Public Use
  Company Number: BR-ASTRAZENECA-2017SE56894

PATIENT
  Age: 49 Year
  Sex: Male
  Weight: 74 kg

DRUGS (3)
  1. MEDI4736 [Suspect]
     Active Substance: DURVALUMAB
     Indication: SQUAMOUS CELL CARCINOMA OF HEAD AND NECK
     Dosage: 736.0MG ONCE/SINGLE ADMINISTRATION
     Route: 042
     Dates: start: 20170428, end: 20170428
  2. OXYCODONE [Concomitant]
     Active Substance: OXYCODONE
     Dates: start: 201704
  3. MEDI4736 [Suspect]
     Active Substance: DURVALUMAB
     Indication: SQUAMOUS CELL CARCINOMA OF HEAD AND NECK
     Dosage: 740.0MG ONCE/SINGLE ADMINISTRATION
     Route: 042
     Dates: start: 20170512, end: 20170512

REACTIONS (2)
  - Pneumonia aspiration [Recovering/Resolving]
  - Pneumonitis [Recovering/Resolving]

NARRATIVE: CASE EVENT DATE: 20170523
